FAERS Safety Report 9052931 (Version 2)
Quarter: 2013Q1

REPORT INFORMATION
  Report Type: Spontaneous
  Country: DK (occurrence: CA)
  Receive Date: 20130207
  Receipt Date: 20130304
  Transmission Date: 20140127
  Serious: Yes (Life-Threatening, Hospitalization)
  Sender: FDA-Public Use
  Company Number: CA-FRI-1000042487

PATIENT
  Age: 37 None
  Sex: Female

DRUGS (1)
  1. CELEXA [Suspect]
     Indication: ANXIETY
     Dosage: 60 MG
     Route: 048

REACTIONS (2)
  - Arrhythmia [Recovered/Resolved]
  - Ventricular fibrillation [Recovered/Resolved]
